FAERS Safety Report 6879538-3 (Version None)
Quarter: 2010Q3

REPORT INFORMATION
  Report Type: 
  Country: None (occurrence: None)
  Receive Date: 20100728
  Receipt Date: 20100712
  Transmission Date: 20110219
  Serious: Yes (Other)
  Sender: FDA-Public Use
  Company Number: PHHY2010US45784

PATIENT
  Sex: Female

DRUGS (8)
  1. TEKTURNA [Suspect]
     Dosage: UNK
     Dates: start: 20100401, end: 20100709
  2. LASIX [Concomitant]
     Dosage: 20 MG
  3. PREVACID [Concomitant]
     Dosage: 30 MG, BID
  4. VALIUM [Concomitant]
     Indication: BACK PAIN
     Dosage: 2.5 TO 5 MG EVERY 4 TO 6 HOURS
  5. VALIUM [Concomitant]
     Indication: PAIN IN EXTREMITY
  6. MULTI-VITAMINS [Concomitant]
  7. BENADRYL [Concomitant]
  8. ONDANSETRON [Concomitant]
     Indication: NAUSEA
     Dosage: 8 MG EVERY 4 HOURS

REACTIONS (11)
  - ABDOMINAL PAIN UPPER [None]
  - CHEST DISCOMFORT [None]
  - CHEST PAIN [None]
  - DYSPNOEA [None]
  - EYELID OEDEMA [None]
  - HYPOAESTHESIA [None]
  - JOINT SWELLING [None]
  - MALAISE [None]
  - NAUSEA [None]
  - OEDEMA PERIPHERAL [None]
  - SWELLING FACE [None]
